FAERS Safety Report 9206603 (Version 1)
Quarter: 2013Q2

REPORT INFORMATION
  Report Type: Spontaneous
  Country: US (occurrence: US)
  Receive Date: 20130403
  Receipt Date: 20130403
  Transmission Date: 20140414
  Serious: Yes (Other)
  Sender: FDA-Public Use
  Company Number: US-JNJFOC-20130318464

PATIENT
  Sex: Female

DRUGS (2)
  1. BENADRYL [Suspect]
     Indication: URTICARIA
     Route: 065
  2. ALOE [Suspect]
     Indication: PRODUCT USED FOR UNKNOWN INDICATION
     Route: 061

REACTIONS (6)
  - Syncope [Unknown]
  - Eye swelling [Unknown]
  - Swelling face [Unknown]
  - Condition aggravated [Unknown]
  - Dry skin [Unknown]
  - Drug ineffective for unapproved indication [Unknown]
